FAERS Safety Report 23669237 (Version 3)
Quarter: 2024Q4

REPORT INFORMATION
  Report Type: Spontaneous
  Country: US (occurrence: US)
  Receive Date: 20240325
  Receipt Date: 20241014
  Transmission Date: 20250115
  Serious: No
  Sender: PFIZER
  Company Number: US-PFIZER INC-PV202400038837

PATIENT
  Age: 79 Year
  Sex: Male

DRUGS (3)
  1. VYNDAMAX [Suspect]
     Active Substance: TAFAMIDIS
     Indication: Acquired ATTR amyloidosis
     Dosage: 61 MG, 1X/DAY
     Route: 048
  2. LIPITOR [Concomitant]
     Active Substance: ATORVASTATIN CALCIUM
     Dosage: TAKE 40 MG BY MOUTH MEDROL DOSE PACK SCHEDULING ONLY
     Route: 048
     Dates: start: 20211013
  3. TREXALL [Concomitant]
     Active Substance: METHOTREXATE SODIUM
     Dosage: TAKE 10 TABLETS (25 MG TOTAL) BY MOUTH ONCE A WEEK. REMEMBER TO DO BLOOD TESTS EVERY 3 MONTHS
     Route: 048
     Dates: start: 20240822

REACTIONS (1)
  - Malaise [Unknown]
